FAERS Safety Report 8013667-6 (Version None)
Quarter: 2011Q4

REPORT INFORMATION
  Report Type: 
  Country: None (occurrence: None)
  Receive Date: 20111229
  Receipt Date: 20111219
  Transmission Date: 20120403
  Serious: Yes (Death)
  Sender: FDA-Public Use
  Company Number: US-PFIZER INC-2011310289

PATIENT
  Age: 71 Year
  Sex: Female

DRUGS (6)
  1. BACLOFEN [Suspect]
  2. DIPHENHYDRAMINE HCL [Suspect]
  3. LISINOPRIL [Suspect]
  4. CITALOPRAM HYDROBROMIDE [Suspect]
  5. IBUPROFEN [Suspect]
  6. NABUMETONE [Suspect]

REACTIONS (3)
  - TOXICITY TO VARIOUS AGENTS [None]
  - COMPLETED SUICIDE [None]
  - INTENTIONAL DRUG MISUSE [None]
